FAERS Safety Report 25235369 (Version 1)
Quarter: 2025Q2

REPORT INFORMATION
  Report Type: Spontaneous
  Country: US (occurrence: None)
  Receive Date: 20250423
  Receipt Date: 20250423
  Transmission Date: 20250716
  Serious: Yes (unspecified)
  Sender: FDA-CTU
  Company Number: None

PATIENT
  Age: 83 Year
  Sex: Female

DRUGS (1)
  1. LORAZEPAM [Suspect]
     Active Substance: LORAZEPAM
     Indication: Anxiety
     Dosage: FREQUENCY : TWICE A DAY;?
     Route: 048
     Dates: start: 20241029, end: 20241029

REACTIONS (5)
  - Unresponsive to stimuli [None]
  - Dyspnoea [None]
  - Oxygen saturation decreased [None]
  - PCO2 increased [None]
  - Depressed level of consciousness [None]

NARRATIVE: CASE EVENT DATE: 20241029
